FAERS Safety Report 14265420 (Version 2)
Quarter: 2018Q1

REPORT INFORMATION
  Report Type: Spontaneous
  Country: FR (occurrence: FR)
  Receive Date: 20171208
  Receipt Date: 20180103
  Transmission Date: 20180508
  Serious: Yes (Hospitalization, Other)
  Sender: FDA-Public Use
  Company Number: FR-MYLANLABS-2017M1076251

PATIENT
  Age: 60 Year
  Sex: Female

DRUGS (4)
  1. BACLOFEN. [Suspect]
     Active Substance: BACLOFEN
     Indication: MULTIPLE SCLEROSIS
     Dosage: UNK
     Route: 065
  2. OXYBUTYNIN. [Concomitant]
     Active Substance: OXYBUTYNIN CHLORIDE
     Indication: MULTIPLE SCLEROSIS
     Route: 065
  3. FAMPRIDINE [Interacting]
     Active Substance: DALFAMPRIDINE
     Indication: MULTIPLE SCLEROSIS
     Dosage: 10 MG, TID
     Route: 065
  4. QIZENDAY [Concomitant]
     Active Substance: BIOTIN
     Indication: MULTIPLE SCLEROSIS
     Dosage: UNK
     Route: 065

REACTIONS (2)
  - Status epilepticus [Unknown]
  - Drug interaction [Unknown]
